FAERS Safety Report 10302954 (Version 4)
Quarter: 2014Q3

REPORT INFORMATION
  Report Type: Spontaneous
  Country: US (occurrence: US)
  Receive Date: 20140714
  Receipt Date: 20140929
  Transmission Date: 20150326
  Serious: Yes (Hospitalization, Other)
  Sender: FDA-Public Use
  Company Number: US-009507513-1407USA005748

PATIENT
  Sex: Female
  Weight: 65.76 kg

DRUGS (4)
  1. BAYER LOW STRENGTH ASPIRIN REGIMEN [Concomitant]
     Dosage: UNK
     Dates: start: 20100415
  2. METOPROLOL [Concomitant]
     Active Substance: METOPROLOL
     Dosage: 25 MG, BID
     Dates: start: 20120316
  3. JANUMET [Suspect]
     Active Substance: METFORMIN HYDROCHLORIDE\SITAGLIPTIN PHOSPHATE
     Indication: TYPE 2 DIABETES MELLITUS
     Dosage: 50/1000MG
     Route: 048
     Dates: start: 20110211, end: 20120228
  4. ONE-A-DAY 50 PLUS [Concomitant]
     Dosage: UNK
     Dates: start: 19990410

REACTIONS (27)
  - Cholecystectomy [Unknown]
  - Pancreatitis chronic [Not Recovered/Not Resolved]
  - Tachycardia [Unknown]
  - Explorative laparotomy [Unknown]
  - Abdominal distension [Unknown]
  - Hysterectomy [Unknown]
  - Pancreatic neuroendocrine tumour [Unknown]
  - Thyroidectomy [Unknown]
  - Iron deficiency anaemia [Unknown]
  - Pleural effusion [Unknown]
  - Pneumobilia [Unknown]
  - Hypertension [Unknown]
  - Urinary tract infection [Unknown]
  - Atelectasis [Unknown]
  - Diverticulum intestinal [Unknown]
  - Malnutrition [Unknown]
  - Hyponatraemia [Unknown]
  - Dyslipidaemia [Unknown]
  - Vomiting [Recovered/Resolved]
  - Abdominal pain [Unknown]
  - Pancreaticoduodenectomy [Unknown]
  - Jejunostomy [Unknown]
  - Mesenteric vein thrombosis [Unknown]
  - Pancreatitis acute [Recovered/Resolved]
  - Klebsiella infection [Unknown]
  - Alpha haemolytic streptococcal infection [Unknown]
  - Hypothyroidism [Unknown]

NARRATIVE: CASE EVENT DATE: 20120307
